FAERS Safety Report 4406668-8 (Version None)
Quarter: 2004Q3

REPORT INFORMATION
  Report Type: 
  Country: None (occurrence: None)
  Receive Date: 20040715
  Receipt Date: 20040614
  Transmission Date: 20050211
  Serious: Yes (Death)
  Sender: FDA-Public Use
  Company Number: 2004222539IT

PATIENT
  Age: 58 Year

DRUGS (5)
  1. ETOPOSIDE [Suspect]
     Indication: HODGKIN'S DISEASE STAGE II
     Dosage: 120 MG/M2, D1-2, Q21DAYS, CYCLIC, IV
     Route: 042
  2. BLEOMYCIN SULFATE (BLEOMYCIN SULFATE) POWDER, STERILE [Suspect]
     Dosage: 10 MG/M2, D1-2, Q21DAYS, CYCLIC, IV
     Route: 042
  3. CYCLOPHOSPHAMIDE [Suspect]
     Indication: HODGKIN'S DISEASE STAGE III
     Dosage: 500 MG/M2, D1-2, Q21DAYS, CYCLIC, IV
     Route: 042
  4. EPIRUBICINA CE (EPIRUBICIN HYDROCHLORIDE) SOLUTION, STERILE [Suspect]
     Indication: HODGKIN'S DISEASE STAGE III
     Dosage: 40 MG/M2, D1-2, Q21DAYS, CYCLIC, IV
     Route: 042
  5. MEDROL [Suspect]
     Indication: HODGKIN'S DISEASE STAGE III
     Dosage: 50 MG/M2, D1-2, Q21DAYS, CYCLIC, IV
     Route: 042

REACTIONS (2)
  - BONE MARROW DEPRESSION [None]
  - SEPSIS [None]
